FAERS Safety Report 25360418 (Version 1)
Quarter: 2025Q2

REPORT INFORMATION
  Report Type: Report from Study
  Country: IN (occurrence: IN)
  Receive Date: 20250527
  Receipt Date: 20250527
  Transmission Date: 20250716
  Serious: Yes (Other)
  Sender: CIPLA
  Company Number: IN-CIPLA LTD.-2025IN06031

PATIENT

DRUGS (8)
  1. METOPROLOL SUCCINATE [Suspect]
     Active Substance: METOPROLOL SUCCINATE
     Indication: Product used for unknown indication
     Route: 048
  2. THYROX [Concomitant]
     Indication: Product used for unknown indication
     Dosage: 100 MICROGRAM, QD (0-2-0)
     Route: 065
  3. DEPLATT-A [Concomitant]
     Indication: Product used for unknown indication
     Dosage: UNK, QD (0-1-0)
     Route: 065
  4. PANTOCID DSR [Concomitant]
     Indication: Product used for unknown indication
     Dosage: UNK, QD (0-1-0)
     Route: 065
  5. ROSUVASTATIN CALCIUM [Concomitant]
     Active Substance: ROSUVASTATIN CALCIUM
     Indication: Product used for unknown indication
     Dosage: UNK, QD (0-1-0)
     Route: 065
  6. MYONIT [Concomitant]
     Indication: Product used for unknown indication
     Dosage: UNK, BID (0-1-0)
     Route: 065
  7. TELMA AM [Concomitant]
     Indication: Product used for unknown indication
     Dosage: UNK, QD (0-1-0)
     Route: 065
  8. ULTRACET [Concomitant]
     Active Substance: ACETAMINOPHEN\TRAMADOL HYDROCHLORIDE
     Indication: Product used for unknown indication
     Dosage: UNK, QD (0-1-0)
     Route: 065

REACTIONS (1)
  - Cholelithiasis [Recovered/Resolved]
